FAERS Safety Report 19087280 (Version 1)
Quarter: 2021Q2

REPORT INFORMATION
  Report Type: Spontaneous
  Country: GB (occurrence: GB)
  Receive Date: 20210402
  Receipt Date: 20210402
  Transmission Date: 20210717
  Serious: Yes (Other)
  Sender: FDA-Public Use
  Company Number: GB-NATCO PHARMA-2021NAT00015

PATIENT
  Age: 72 Year
  Sex: Female

DRUGS (1)
  1. LETROZOLE. [Suspect]
     Active Substance: LETROZOLE
     Indication: BREAST CANCER
     Dosage: 2.5 MG, 1X/DAY
     Route: 065

REACTIONS (3)
  - Abdominal discomfort [Recovered/Resolved]
  - Vasculitis necrotising [Recovered/Resolved]
  - Pneumonitis [Recovered/Resolved]
